FAERS Safety Report 20055537 (Version 1)
Quarter: 2021Q4

REPORT INFORMATION
  Report Type: Spontaneous
  Country: US (occurrence: US)
  Receive Date: 20211110
  Receipt Date: 20211110
  Transmission Date: 20220303
  Serious: No
  Sender: FDA-Public Use
  Company Number: US-UNITED THERAPEUTICS-UNT-2021-022572

PATIENT
  Age: 40 Year
  Sex: Male
  Weight: 95.964 kg

DRUGS (3)
  1. TYVASO [Suspect]
     Active Substance: TREPROSTINIL
     Indication: Pulmonary arterial hypertension
     Dosage: UNK
     Dates: start: 20210420
  2. TYVASO [Suspect]
     Active Substance: TREPROSTINIL
     Dosage: 18-60 ?G , QID
     Dates: start: 2021
  3. SILDENAFIL CITRATE [Concomitant]
     Active Substance: SILDENAFIL CITRATE
     Indication: Product used for unknown indication
     Dosage: UNK
     Route: 065

REACTIONS (1)
  - Localised oedema [Unknown]

NARRATIVE: CASE EVENT DATE: 20211001
